FAERS Safety Report 6877708-1 (Version None)
Quarter: 2010Q3

REPORT INFORMATION
  Report Type: 
  Country: None (occurrence: None)
  Receive Date: 20100727
  Receipt Date: 20100607
  Transmission Date: 20110219
  Serious: No
  Sender: FDA-Public Use
  Company Number: US-ABBOTT-10P-163-0650420-00

PATIENT
  Sex: Female
  Weight: 56.75 kg

DRUGS (5)
  1. SYNTHROID [Suspect]
     Indication: HYPOTHYROIDISM
     Dates: start: 19780101
  2. TRILIPIX [Suspect]
     Indication: BLOOD CHOLESTEROL INCREASED
     Dates: start: 20100501, end: 20100602
  3. BENICAR [Concomitant]
     Indication: HYPERTENSION
  4. VITAMIN D [Concomitant]
     Indication: HYPOVITAMINOSIS
  5. CALCIUM [Concomitant]
     Indication: MINERAL SUPPLEMENTATION

REACTIONS (13)
  - AORTIC DILATATION [None]
  - ASTHENIA [None]
  - CHEST PAIN [None]
  - COUGH [None]
  - DRUG HYPERSENSITIVITY [None]
  - HEPATIC ENZYME INCREASED [None]
  - JOINT STIFFNESS [None]
  - MUSCULOSKELETAL STIFFNESS [None]
  - NAUSEA [None]
  - POLLAKIURIA [None]
  - PRURITUS [None]
  - RASH [None]
  - SNEEZING [None]
